FAERS Safety Report 9032213 (Version 1)
Quarter: 2013Q1

REPORT INFORMATION
  Report Type: Spontaneous
  Country: US (occurrence: US)
  Receive Date: 20130122
  Receipt Date: 20130122
  Transmission Date: 20140127
  Serious: Yes (Life-Threatening)
  Sender: FDA-Public Use
  Company Number: US-009507513-0812USA00704

PATIENT
  Age: 13 Year
  Sex: Female
  Weight: 58.97 kg

DRUGS (1)
  1. SINGULAIR [Suspect]
     Indication: ASTHMA
     Dosage: UNK MG, UNK
     Route: 048
     Dates: start: 20070915, end: 20080507

REACTIONS (11)
  - Abnormal behaviour [Unknown]
  - Affective disorder [Unknown]
  - Anxiety [Unknown]
  - Attention deficit/hyperactivity disorder [Unknown]
  - Cognitive disorder [Unknown]
  - Educational problem [Unknown]
  - Hallucination [Unknown]
  - Nightmare [Unknown]
  - Self esteem decreased [Unknown]
  - Self-injurious ideation [Unknown]
  - Suicidal ideation [Unknown]
